FAERS Safety Report 11128611 (Version 1)
Quarter: 2015Q2

REPORT INFORMATION
  Report Type: Spontaneous
  Country: FR (occurrence: None)
  Receive Date: 20150519
  Receipt Date: 20150519
  Transmission Date: 20150821
  Serious: Yes (Hospitalization)
  Sender: FDA-Public Use
  Company Number: 8024241

PATIENT
  Age: 63 Year
  Sex: Female

DRUGS (2)
  1. LEVOTHYROX (LEVOTHYROXINE SODIUM) (LEVOTHYROXINE SODIUM) [Suspect]
     Active Substance: LEVOTHYROXINE SODIUM
     Indication: PRODUCT USED FOR UNKNOWN INDICATION
     Route: 048
  2. HUMIRA [Suspect]
     Active Substance: ADALIMUMAB
     Indication: PRODUCT USED FOR UNKNOWN INDICATION
     Route: 058
     Dates: start: 201308

REACTIONS (3)
  - Transient ischaemic attack [None]
  - Headache [None]
  - Nausea [None]

NARRATIVE: CASE EVENT DATE: 20150124
